FAERS Safety Report 23275581 (Version 1)
Quarter: 2023Q4

REPORT INFORMATION
  Report Type: Spontaneous
  Country: US (occurrence: US)
  Receive Date: 20231208
  Receipt Date: 20231208
  Transmission Date: 20240110
  Serious: Yes (Hospitalization, Other)
  Sender: FDA-Public Use
  Company Number: US-MLMSERVICE-20231121-4678607-1

PATIENT

DRUGS (1)
  1. ALENDRONATE [Suspect]
     Active Substance: ALENDRONATE SODIUM
     Indication: Osteoporosis postmenopausal
     Dosage: 70 MILLIGRAM, WEEKLY FOR THREE YEARS
     Route: 048

REACTIONS (3)
  - Osteomyelitis acute [Recovered/Resolved]
  - Osteomyelitis chronic [Recovered/Resolved]
  - Osteonecrosis of jaw [Recovered/Resolved]
